FAERS Safety Report 25594388 (Version 1)
Quarter: 2025Q3

REPORT INFORMATION
  Report Type: Spontaneous
  Country: US (occurrence: None)
  Receive Date: 20250723
  Receipt Date: 20250723
  Transmission Date: 20251020
  Serious: No
  Sender: Rayner
  Company Number: US-Moorfields Pharmaceuticals-RPH202505-000006

PATIENT

DRUGS (1)
  1. OMIDRIA [Suspect]
     Active Substance: KETOROLAC\PHENYLEPHRINE
     Indication: Product used for unknown indication

REACTIONS (1)
  - Adverse event [Unknown]
